FAERS Safety Report 24935624 (Version 1)
Quarter: 2025Q1

REPORT INFORMATION
  Report Type: Report from Study
  Country: US (occurrence: US)
  Receive Date: 20250206
  Receipt Date: 20250206
  Transmission Date: 20250408
  Serious: Yes (Other)
  Sender: EXELIXIS
  Company Number: US-EXELIXIS-CABO-24079708

PATIENT
  Sex: Male

DRUGS (3)
  1. CABOMETYX [Suspect]
     Active Substance: CABOZANTINIB S-MALATE
     Indication: Renal cancer
  2. CABOMETYX [Suspect]
     Active Substance: CABOZANTINIB S-MALATE
     Dosage: 20 MG, QD
     Route: 048
  3. CABOMETYX [Suspect]
     Active Substance: CABOZANTINIB S-MALATE
     Dosage: 20 MG, QD
     Route: 048

REACTIONS (13)
  - Weight decreased [Unknown]
  - Conduction disorder [Unknown]
  - Diabetes mellitus [Unknown]
  - Adverse drug reaction [Recovered/Resolved]
  - Diarrhoea [Unknown]
  - Decreased appetite [Recovering/Resolving]
  - Fatigue [Not Recovered/Not Resolved]
  - Paraesthesia [Unknown]
  - Peripheral swelling [Unknown]
  - Feeling hot [Unknown]
  - Tooth disorder [Unknown]
  - Oral pain [Unknown]
  - Product dose omission issue [Unknown]
